FAERS Safety Report 12545055 (Version 1)
Quarter: 2016Q3

REPORT INFORMATION
  Report Type: Report from Study
  Country: US (occurrence: US)
  Receive Date: 20160711
  Receipt Date: 20160711
  Transmission Date: 20161109
  Serious: Yes (Other)
  Sender: FDA-Public Use
  Company Number: US-JNJFOC-20160327502

PATIENT
  Age: 62 Year
  Sex: Female

DRUGS (4)
  1. BAYER ASPIRIN [Concomitant]
     Active Substance: ASPIRIN
  2. IMBRUVICA [Suspect]
     Active Substance: IBRUTINIB
     Indication: CHRONIC LYMPHOCYTIC LEUKAEMIA
     Route: 048
     Dates: start: 20160130
  3. FISH OIL [Concomitant]
     Active Substance: FISH OIL
  4. VITAMIN D [Concomitant]
     Active Substance: CHOLECALCIFEROL

REACTIONS (7)
  - Musculoskeletal pain [Unknown]
  - Gallbladder operation [Recovered/Resolved]
  - Pain in extremity [Unknown]
  - Joint stiffness [Unknown]
  - Myalgia [Unknown]
  - Dyspepsia [Unknown]
  - Constipation [Unknown]

NARRATIVE: CASE EVENT DATE: 2016
